FAERS Safety Report 5036414-9 (Version None)
Quarter: 2006Q2

REPORT INFORMATION
  Report Type: 
  Country: None (occurrence: None)
  Receive Date: 20060601
  Receipt Date: 20060410
  Transmission Date: 20061013
  Serious: No
  Sender: FDA-Public Use
  Company Number: US200604001864

PATIENT
  Age: 38 Year
  Sex: Male

DRUGS (7)
  1. CIALIS [Suspect]
     Indication: ERECTILE DYSFUNCTION
     Dosage: 10 MG
     Dates: start: 20051201
  2. CYMBALTA [Suspect]
  3. DIAZEPAM [Concomitant]
  4. ZANTAC [Concomitant]
  5. LOMOTIL [Concomitant]
  6. NORCO [Concomitant]
  7. OXYCONTIN [Concomitant]

REACTIONS (1)
  - AMPHETAMINES POSITIVE [None]
